FAERS Safety Report 24369590 (Version 1)
Quarter: 2024Q3

REPORT INFORMATION
  Report Type: Report from Study
  Country: US (occurrence: US)
  Receive Date: 20240927
  Receipt Date: 20240927
  Transmission Date: 20241016
  Serious: No
  Sender: ROCHE
  Company Number: US-ROCHE-3465956

PATIENT
  Age: 81 Year
  Sex: Female
  Weight: 77.11 kg

DRUGS (4)
  1. LUCENTIS [Suspect]
     Active Substance: RANIBIZUMAB
     Indication: Neovascular age-related macular degeneration
     Dosage: INJECTION BOTH EYES EVERY 8 - 10 WEEKS? FREQUENCY TEXT:EVERY 8 - 10 WEEKS
     Route: 065
     Dates: start: 2021
  2. LUCENTIS [Suspect]
     Active Substance: RANIBIZUMAB
     Indication: Choroidal neovascularisation
     Route: 065
     Dates: start: 20181120
  3. AVASTIN [Suspect]
     Active Substance: BEVACIZUMAB
     Indication: Age-related macular degeneration
     Route: 065
  4. TEMAZEPAM [Concomitant]
     Active Substance: TEMAZEPAM

REACTIONS (7)
  - Vision blurred [Recovered/Resolved]
  - Off label use [Unknown]
  - Eye disorder [Recovered/Resolved]
  - Off label use [Unknown]
  - Walking aid user [Not Recovered/Not Resolved]
  - Vitreous floaters [Recovered/Resolved]
  - Eye disorder [Not Recovered/Not Resolved]

NARRATIVE: CASE EVENT DATE: 20210101
